FAERS Safety Report 7124870-1 (Version None)
Quarter: 2010Q4

REPORT INFORMATION
  Report Type: 
  Country: None (occurrence: None)
  Receive Date: 20101112
  Receipt Date: 20101026
  Transmission Date: 20110411
  Serious: Yes (Disabling)
  Sender: FDA-Public Use
  Company Number: KV201000340

PATIENT
  Age: 60 Year
  Sex: Female

DRUGS (4)
  1. PREDNISOLONE [Suspect]
     Indication: T-CELL LYMPHOMA STAGE III
  2. CYCLOPHOSPHAMIDE [Suspect]
     Indication: T-CELL LYMPHOMA STAGE III
  3. DOXORUBICIN (DOXORUBICIN) [Suspect]
     Indication: T-CELL LYMPHOMA STAGE III
  4. VINCRISTINE [Suspect]
     Indication: T-CELL LYMPHOMA STAGE III

REACTIONS (4)
  - BLINDNESS [None]
  - REVERSIBLE POSTERIOR LEUKOENCEPHALOPATHY SYNDROME [None]
  - VISION BLURRED [None]
  - VISUAL ACUITY REDUCED [None]
